FAERS Safety Report 4575571-5 (Version None)
Quarter: 2005Q1

REPORT INFORMATION
  Report Type: 
  Country: None (occurrence: None)
  Receive Date: 20050128
  Receipt Date: 20050128
  Transmission Date: 20050727
  Serious: Yes (Hospitalization, Disabling)
  Sender: FDA-Public Use
  Company Number: None

PATIENT
  Sex: Female
  Weight: 74.8435 kg

DRUGS (1)
  1. LEVAQUIN [Suspect]
     Indication: LOCALISED INFECTION
     Dosage: ONE 500 MG    DAILY   ORAL
     Route: 048
     Dates: start: 20050102, end: 20050109

REACTIONS (5)
  - ARTHRALGIA [None]
  - FATIGUE [None]
  - MENISCUS LESION [None]
  - MENTAL IMPAIRMENT [None]
  - MYALGIA [None]
